FAERS Safety Report 11324526 (Version 1)
Quarter: 2015Q3

REPORT INFORMATION
  Report Type: Spontaneous
  Country: US (occurrence: US)
  Receive Date: 20150730
  Receipt Date: 20150730
  Transmission Date: 20151125
  Serious: Yes (Other)
  Sender: FDA-Public Use
  Company Number: US-GLAXOSMITHKLINE-US2015GSK108560

PATIENT
  Sex: Female

DRUGS (3)
  1. COREG [Suspect]
     Active Substance: CARVEDILOL
     Dosage: 12.5 MG, UNK
  2. VENTOLIN HFA [Suspect]
     Active Substance: ALBUTEROL SULFATE
     Route: 055
  3. COREG [Suspect]
     Active Substance: CARVEDILOL
     Dosage: 25 MG, UNK

REACTIONS (1)
  - Dementia [Unknown]
